FAERS Safety Report 8396094-1 (Version None)
Quarter: 2012Q2

REPORT INFORMATION
  Report Type: 
  Country: None (occurrence: None)
  Receive Date: 20120530
  Receipt Date: 20120518
  Transmission Date: 20120825
  Serious: Yes (Hospitalization)
  Sender: FDA-Public Use
  Company Number: US-BAXTER-2012BAX004868

PATIENT
  Sex: Female
  Weight: 65.5 kg

DRUGS (22)
  1. ARALAST NP [Suspect]
     Indication: ALPHA-1 ANTI-TRYPSIN DEFICIENCY
  2. XOPENEX [Concomitant]
     Route: 048
  3. ATIVAN [Concomitant]
     Route: 048
  4. CARTIA XT [Concomitant]
     Route: 048
  5. CELEXA [Concomitant]
     Route: 048
  6. NEXIUM [Concomitant]
     Route: 048
  7. REQUIP [Concomitant]
     Route: 048
  8. ARALAST NP [Suspect]
     Indication: DRUG THERAPY ENHANCEMENT
     Route: 042
  9. PREDNISONE TAB [Concomitant]
     Route: 048
  10. CARTIA XT [Concomitant]
     Route: 048
  11. POTASSIUM CHLORIDE [Concomitant]
     Route: 048
  12. SALAGEN [Concomitant]
     Route: 048
  13. THEOPHYLLINE [Concomitant]
     Route: 048
  14. ZOCOR [Concomitant]
     Route: 048
  15. VITAMIN D [Concomitant]
     Route: 048
  16. CALCIUM CITRATE [Concomitant]
     Route: 048
  17. DIGOXIN [Concomitant]
     Route: 048
  18. MYLANTA [Concomitant]
     Route: 048
  19. MULTI-VITAMIN [Concomitant]
     Route: 048
  20. SINGULAIR [Concomitant]
     Route: 048
  21. FISH OIL [Concomitant]
     Route: 048
  22. PERCOCET [Concomitant]
     Route: 048

REACTIONS (7)
  - FATIGUE [None]
  - ASTHENIA [None]
  - PNEUMONIA [None]
  - FAECALOMA [None]
  - DYSPNOEA [None]
  - MALAISE [None]
  - SPINAL FRACTURE [None]
